FAERS Safety Report 5260560-8 (Version None)
Quarter: 2007Q1

REPORT INFORMATION
  Report Type: 
  Country: None (occurrence: None)
  Receive Date: 20070309
  Receipt Date: 20061031
  Transmission Date: 20070707
  Serious: No
  Sender: FDA-Public Use
  Company Number: US-GLAXOSMITHKLINE-A0625342A

PATIENT
  Age: 66 Year
  Sex: Male

DRUGS (2)
  1. EQUATE NICOTINE GUM 2MG, MINT [Suspect]
  2. NICORETTE (MINT) [Suspect]

REACTIONS (1)
  - INTENTIONAL DRUG MISUSE [None]
